FAERS Safety Report 11825308 (Version 1)
Quarter: 2015Q4

REPORT INFORMATION
  Report Type: Spontaneous
  Country: US (occurrence: US)
  Receive Date: 20151211
  Receipt Date: 20151211
  Transmission Date: 20160305
  Serious: Yes (Other)
  Sender: FDA-Public Use
  Company Number: US-BIOTEST-T 812/15

PATIENT
  Age: 11 Year
  Sex: Male

DRUGS (2)
  1. LAMOTRIGINE. [Concomitant]
     Active Substance: LAMOTRIGINE
     Indication: ABNORMAL BEHAVIOUR
  2. IVIG US [Suspect]
     Active Substance: HUMAN IMMUNOGLOBULIN G
     Indication: DRUG REACTION WITH EOSINOPHILIA AND SYSTEMIC SYMPTOMS

REACTIONS (5)
  - Brain oedema [Recovered/Resolved]
  - Mental status changes [None]
  - Posterior reversible encephalopathy syndrome [Recovered/Resolved]
  - Seizure [Recovered/Resolved]
  - Blood pressure increased [Recovered/Resolved]
